FAERS Safety Report 9228063 (Version 2)
Quarter: 2014Q2

REPORT INFORMATION
  Report Type: Report from Study
  Country: AU (occurrence: AU)
  Receive Date: 20130412
  Receipt Date: 20140424
  Transmission Date: 20141212
  Serious: Yes (Other)
  Sender: FDA-Public Use
  Company Number: AU-ROCHE-1209693

PATIENT
  Age: 46 Year
  Sex: Female

DRUGS (5)
  1. ACTEMRA [Suspect]
     Indication: RHEUMATOID ARTHRITIS
     Route: 042
  2. ACTEMRA [Suspect]
     Route: 042
     Dates: start: 20100326, end: 20140411
  3. OLMETEC [Concomitant]
     Indication: BLOOD PRESSURE
     Route: 048
  4. ENDEP [Concomitant]
     Indication: PAIN
     Route: 048
  5. HYDRENE [Concomitant]
     Indication: BLOOD PRESSURE
     Dosage: DOSE: 25/12.5
     Route: 048

REACTIONS (5)
  - Hepatic cirrhosis [Unknown]
  - Hepatic enzyme increased [Unknown]
  - Hepatic enzyme increased [Unknown]
  - Blood potassium decreased [Unknown]
  - Pain [Unknown]
